FAERS Safety Report 5009733-X (Version None)
Quarter: 2006Q2

REPORT INFORMATION
  Report Type: 
  Country: None (occurrence: None)
  Receive Date: 20060524
  Receipt Date: 20051116
  Transmission Date: 20061013
  Serious: Yes (Hospitalization)
  Sender: FDA-Public Use
  Company Number: PHEH2005US12654

PATIENT
  Age: 25 Year
  Sex: Female
  Weight: 118 kg

DRUGS (4)
  1. GLEEVEC [Suspect]
     Indication: CHRONIC MYELOID LEUKAEMIA
     Dosage: 600 MG, QD
  2. GLEEVEC [Suspect]
     Dosage: 400 MG, QD
     Route: 048
     Dates: start: 20050831
  3. ZANTAC [Concomitant]
     Dosage: UNK, QD
  4. TYLENOL (GELTAB) [Concomitant]

REACTIONS (1)
  - ASTHMA [None]
